FAERS Safety Report 9281744 (Version 2)
Quarter: 2013Q2

REPORT INFORMATION
  Report Type: Spontaneous
  Country: US (occurrence: US)
  Receive Date: 20130510
  Receipt Date: 20130628
  Transmission Date: 20140414
  Serious: Yes (Other)
  Sender: FDA-Public Use
  Company Number: US-B.I. PHARMACEUTICALS,INC./RIDGEFIELD-2013-BI-12870BP

PATIENT
  Age: 58 Year
  Sex: Male
  Weight: 102.06 kg

DRUGS (2)
  1. PRADAXA [Suspect]
     Indication: ANTICOAGULANT THERAPY
     Dosage: 300 MG
     Route: 048
     Dates: start: 20110809, end: 20110921
  2. SOTALOL [Concomitant]
     Dates: start: 2003

REACTIONS (2)
  - Vitreous haemorrhage [Unknown]
  - Hyphaema [Recovered/Resolved]
